FAERS Safety Report 8497760-X (Version None)
Quarter: 2012Q3

REPORT INFORMATION
  Report Type: 
  Country: None (occurrence: None)
  Receive Date: 20120709
  Receipt Date: 20120608
  Transmission Date: 20120928
  Serious: Yes (Other)
  Sender: FDA-Public Use
  Company Number: US-AMGEN-USASP2012036016

PATIENT
  Age: 67 Year
  Sex: Female

DRUGS (1)
  1. ENBREL [Suspect]
     Indication: RHEUMATOID ARTHRITIS
     Dosage: 50 MG, QWK
     Dates: start: 20080101, end: 20120530

REACTIONS (8)
  - PYREXIA [None]
  - COUGH [None]
  - CHILLS [None]
  - BEDRIDDEN [None]
  - NASAL CONGESTION [None]
  - DYSPHONIA [None]
  - HYPERHIDROSIS [None]
  - RHINORRHOEA [None]
